FAERS Safety Report 24686401 (Version 4)
Quarter: 2025Q3

REPORT INFORMATION
  Report Type: Report from Study
  Country: JP (occurrence: JP)
  Receive Date: 20241202
  Receipt Date: 20250919
  Transmission Date: 20251021
  Serious: Yes (Hospitalization, Other)
  Sender: ABBVIE
  Company Number: JP-TAKEDA-2024TJP012056

PATIENT
  Age: 41 Year
  Sex: Male
  Weight: 58.3 kg

DRUGS (11)
  1. LEUPROLIDE ACETATE [Suspect]
     Active Substance: LEUPROLIDE ACETATE
     Indication: Bulbospinal muscular atrophy congenital
     Dosage: 11.25 MILLIGRAM, Q3MONTHS
     Route: 058
     Dates: start: 20220325
  2. SHAKUYAKUKANZOTO [Concomitant]
     Active Substance: HERBALS
     Indication: Bulbospinal muscular atrophy congenital
     Route: 065
     Dates: end: 20220421
  3. SHAKUYAKUKANZOTO [Concomitant]
     Active Substance: HERBALS
     Indication: Bulbospinal muscular atrophy congenital
     Route: 065
     Dates: start: 20230609, end: 20230708
  4. SHAKUYAKUKANZOTO [Concomitant]
     Active Substance: HERBALS
     Indication: Bulbospinal muscular atrophy congenital
     Route: 065
     Dates: start: 20240207
  5. SHAKUYAKUKANZOTO [Concomitant]
     Active Substance: HERBALS
     Indication: Bulbospinal muscular atrophy congenital
     Route: 065
     Dates: start: 20231124, end: 20240206
  6. SHAKUYAKUKANZOTO [Concomitant]
     Active Substance: HERBALS
     Indication: Bulbospinal muscular atrophy congenital
     Route: 065
     Dates: start: 20230901, end: 20231123
  7. CALONAL [Concomitant]
     Active Substance: ACETAMINOPHEN
     Indication: Product used for unknown indication
     Dates: start: 20231027, end: 20231105
  8. LOXOPROFEN SODIUM [Concomitant]
     Active Substance: LOXOPROFEN SODIUM
     Indication: Product used for unknown indication
     Dates: start: 20231027, end: 20231102
  9. ESOMEPRAZOLE MAGNESIUM [Concomitant]
     Active Substance: ESOMEPRAZOLE MAGNESIUM
     Indication: Product used for unknown indication
     Dates: start: 20231027, end: 20231102
  10. KEFLEX [Concomitant]
     Active Substance: CEPHALEXIN
     Indication: Product used for unknown indication
     Dates: start: 20231027, end: 20231029
  11. AROTINOLOL HYDROCHLORIDE [Concomitant]
     Active Substance: AROTINOLOL HYDROCHLORIDE
     Indication: Bulbospinal muscular atrophy congenital
     Route: 065

REACTIONS (26)
  - Pneumonia [Recovered/Resolved]
  - Tenosynovitis [Recovered/Resolved]
  - Pneumonia [Recovered/Resolved]
  - Rib fracture [Recovered/Resolved]
  - Pyrexia [Recovered/Resolved]
  - Seasonal allergy [Recovered/Resolved]
  - Eczema [Recovering/Resolving]
  - Tinea pedis [Recovered/Resolved]
  - Pyrexia [Recovered/Resolved]
  - Cough [Recovered/Resolved]
  - Rhinitis [Recovered/Resolved]
  - Trigger finger [Recovered/Resolved]
  - Injection site swelling [Recovered/Resolved]
  - Seasonal allergy [Recovered/Resolved]
  - Blood testosterone decreased [Unknown]
  - Eczema [Recovering/Resolving]
  - Pruritus [Recovered/Resolved]
  - Skin abrasion [Recovering/Resolving]
  - Blood creatine phosphokinase increased [Unknown]
  - Pruritus [Recovering/Resolving]
  - Eczema [Recovering/Resolving]
  - Aspartate aminotransferase increased [Unknown]
  - Seasonal allergy [Recovered/Resolved]
  - Nasopharyngitis [Recovered/Resolved]
  - Injection site pruritus [Recovered/Resolved]
  - Injection site induration [Recovered/Resolved]

NARRATIVE: CASE EVENT DATE: 20220609
